FAERS Safety Report 21718374 (Version 1)
Quarter: 2022Q4

REPORT INFORMATION
  Report Type: Spontaneous
  Country: PL (occurrence: PL)
  Receive Date: 20221212
  Receipt Date: 20221212
  Transmission Date: 20230112
  Serious: Yes (Other)
  Sender: FDA-Public Use
  Company Number: PL-BAYER-2022A169563

PATIENT
  Age: 38 Year
  Sex: Male

DRUGS (8)
  1. XARELTO [Suspect]
     Active Substance: RIVAROXABAN
     Indication: Pulmonary embolism
     Dosage: 15 MG, BID
     Route: 048
  2. XARELTO [Suspect]
     Active Substance: RIVAROXABAN
     Indication: Pulmonary embolism
     Dosage: 20 MG, QD
     Route: 048
  3. REMDESIVIR [Concomitant]
     Active Substance: REMDESIVIR
  4. DEXAMETHASONE [Concomitant]
     Active Substance: DEXAMETHASONE
  5. ENOXAPARIN [Concomitant]
     Active Substance: ENOXAPARIN
  6. CEFTRIAXONE [Concomitant]
     Active Substance: CEFTRIAXONE
  7. OXYGEN [Concomitant]
     Active Substance: OXYGEN
  8. HUMAN PLASMA [Concomitant]
     Active Substance: HUMAN PLASMA

REACTIONS (5)
  - Retinal vein occlusion [Unknown]
  - Cystoid macular oedema [Unknown]
  - Rebound effect [Unknown]
  - Hypercoagulation [Unknown]
  - Visual acuity reduced [Recovered/Resolved]
